FAERS Safety Report 7305646-9 (Version None)
Quarter: 2011Q1

REPORT INFORMATION
  Report Type: 
  Country: None (occurrence: None)
  Receive Date: 20110222
  Receipt Date: 20110214
  Transmission Date: 20110831
  Serious: Yes (Congenital Anomaly)
  Sender: FDA-Public Use
  Company Number: A0687242A

PATIENT
  Sex: Female

DRUGS (2)
  1. FOLIC ACID [Concomitant]
  2. PAXIL [Suspect]
     Indication: DEPRESSION
     Dosage: 60MG PER DAY
     Route: 064
     Dates: start: 19980101, end: 20050101

REACTIONS (8)
  - PULMONARY VALVE STENOSIS [None]
  - DEXTROCARDIA [None]
  - MULTIPLE CONGENITAL ABNORMALITIES [None]
  - MUSCULOSKELETAL DISCOMFORT [None]
  - HEART DISEASE CONGENITAL [None]
  - DRUG EXPOSURE DURING PREGNANCY [None]
  - CONGENITAL ANOMALY [None]
  - SPINE MALFORMATION [None]
